FAERS Safety Report 8269013-6 (Version None)
Quarter: 2012Q2

REPORT INFORMATION
  Report Type: 
  Country: None (occurrence: None)
  Receive Date: 20120409
  Receipt Date: 20120404
  Transmission Date: 20120825
  Serious: Yes (Other)
  Sender: FDA-Public Use
  Company Number: SG-BAYER-2012-032981

PATIENT
  Age: 25 Year
  Sex: Female

DRUGS (3)
  1. CAFFEINE CITRATE [Concomitant]
  2. ASPIRIN [Suspect]
  3. ACETAMINOPHEN [Concomitant]

REACTIONS (1)
  - ANGIOEDEMA [None]
